FAERS Safety Report 9063404 (Version 1)
Quarter: 2013Q1

REPORT INFORMATION
  Report Type: Report from Study
  Country: US (occurrence: US)
  Receive Date: 20130131
  Receipt Date: 20130131
  Transmission Date: 20140127
  Serious: No
  Sender: FDA-Public Use
  Company Number: US-ABBOTT-12P-163-1009571-00

PATIENT
  Age: 29 Year
  Sex: Male

DRUGS (3)
  1. HUMIRA [Suspect]
     Indication: PSORIASIS
     Route: 058
     Dates: start: 20121004
  2. UNKNOWN BLOOD PRESSURE MEDICATION [Concomitant]
     Indication: BLOOD PRESSURE
  3. UNKNOWN THYROID MEDICATION [Concomitant]
     Indication: THYROID DISORDER

REACTIONS (3)
  - Drug administration error [Unknown]
  - Drug dose omission [Unknown]
  - Drug ineffective [Not Recovered/Not Resolved]
